FAERS Safety Report 24194562 (Version 3)
Quarter: 2024Q4

REPORT INFORMATION
  Report Type: Spontaneous
  Country: US (occurrence: US)
  Receive Date: 20240809
  Receipt Date: 20241011
  Transmission Date: 20250114
  Serious: No
  Sender: VERTEX
  Company Number: US-VERTEX PHARMACEUTICALS-2024-012759

PATIENT

DRUGS (2)
  1. TRIKAFTA [Suspect]
     Active Substance: ELEXACAFTOR\IVACAFTOR\TEZACAFTOR
     Indication: Cystic fibrosis
     Route: 048
  2. CLARITIN [Concomitant]
     Active Substance: LORATADINE

REACTIONS (7)
  - Nausea [Recovered/Resolved]
  - Apathy [Unknown]
  - Productive cough [Recovered/Resolved]
  - Decreased interest [Unknown]
  - Sinus disorder [Unknown]
  - Secretion discharge [Unknown]
  - Pruritus [Unknown]
